FAERS Safety Report 10734291 (Version 1)
Quarter: 2015Q1

REPORT INFORMATION
  Report Type: Spontaneous
  Country: US (occurrence: US)
  Receive Date: 20150123
  Receipt Date: 20150123
  Transmission Date: 20150721
  Serious: No
  Sender: FDA-Public Use
  Company Number: US-BRISTOL-MYERS SQUIBB COMPANY-BMS-2015-003425

PATIENT
  Age: 81 Year
  Sex: Female

DRUGS (11)
  1. LISINOPRIL. [Concomitant]
     Active Substance: LISINOPRIL
  2. CALCIUM [Concomitant]
     Active Substance: CALCIUM
  3. VITAMINS WITH MINERALS [Concomitant]
     Active Substance: MINERALS\VITAMINS
  4. ELIQUIS [Suspect]
     Active Substance: APIXABAN
     Indication: CEREBROVASCULAR ACCIDENT PROPHYLAXIS
     Dosage: 5 MG, BID
     Route: 048
     Dates: start: 20141219
  5. XARELTO [Suspect]
     Active Substance: RIVAROXABAN
     Indication: PRODUCT USED FOR UNKNOWN INDICATION
     Route: 065
  6. LEVOTHYROXINE [Concomitant]
     Active Substance: LEVOTHYROXINE
  7. BENEFIBER                          /00677201/ [Concomitant]
  8. B12                                /00056201/ [Concomitant]
  9. PREVACID [Concomitant]
     Active Substance: LANSOPRAZOLE
  10. CLARITIN [Concomitant]
     Active Substance: LORATADINE
  11. VITAMIN D3 [Concomitant]
     Active Substance: CHOLECALCIFEROL

REACTIONS (1)
  - Adverse event [Unknown]

NARRATIVE: CASE EVENT DATE: 20150102
